FAERS Safety Report 10753487 (Version 1)
Quarter: 2015Q1

REPORT INFORMATION
  Report Type: Report from Study
  Country: GB (occurrence: None)
  Receive Date: 20150129
  Receipt Date: 20150129
  Transmission Date: 20150721
  Serious: Yes (Hospitalization)
  Sender: FDA-Public Use
  Company Number: 2014MPI00247

PATIENT
  Age: 21 Year
  Sex: Female
  Weight: 87 kg

DRUGS (6)
  1. BRENTUXIMAB VEDOTIN [Suspect]
     Active Substance: BRENTUXIMAB VEDOTIN
     Indication: LYMPHOMA
     Route: 042
     Dates: start: 20131017, end: 20140227
  2. VINBLASTINE [Suspect]
     Active Substance: VINBLASTINE
     Route: 042
     Dates: start: 20131017, end: 20140227
  3. DACARBAZINE. [Suspect]
     Active Substance: DACARBAZINE
     Route: 042
     Dates: start: 20131017, end: 20140227
  4. VINBLASTINE [Suspect]
     Active Substance: VINBLASTINE
     Indication: LYMPHOMA
     Route: 042
     Dates: start: 20131017, end: 20140227
  5. DOXORUBICIN (DOXORUBICIN) INJECTION [Suspect]
     Active Substance: DOXORUBICIN
     Indication: LYMPHOMA
     Route: 042
     Dates: start: 20131017, end: 20140227
  6. DACARBAZINE. [Suspect]
     Active Substance: DACARBAZINE
     Indication: LYMPHOMA
     Route: 042
     Dates: start: 20131017, end: 20140227

REACTIONS (3)
  - Febrile neutropenia [None]
  - Skin infection [None]
  - Constipation [None]

NARRATIVE: CASE EVENT DATE: 20140311
